FAERS Safety Report 12199971 (Version 1)
Quarter: 2016Q1

REPORT INFORMATION
  Report Type: Spontaneous
  Country: JP (occurrence: JP)
  Receive Date: 20160322
  Receipt Date: 20160322
  Transmission Date: 20160526
  Serious: Yes (Hospitalization, Other)
  Sender: FDA-Public Use
  Company Number: JP-MDT-ADR-2015-02433

PATIENT
  Sex: Female

DRUGS (1)
  1. GABALON [Suspect]
     Active Substance: BACLOFEN
     Dosage: 50 OR 60 MCG/DAY

REACTIONS (5)
  - Medical device site swelling [Unknown]
  - Cerebrospinal fluid leakage [Unknown]
  - Computerised tomogram abnormal [Unknown]
  - Implant site extravasation [Unknown]
  - Hyperaemia [Unknown]
